FAERS Safety Report 10724482 (Version 1)
Quarter: 2015Q1

REPORT INFORMATION
  Report Type: Report from Study
  Country: US (occurrence: US)
  Receive Date: 20150120
  Receipt Date: 20150120
  Transmission Date: 20150721
  Serious: Yes (Other)
  Sender: FDA-Public Use
  Company Number: PHEH2014US021657

PATIENT
  Sex: Male

DRUGS (1)
  1. TASIGNA [Suspect]
     Active Substance: NILOTINIB
     Indication: CHRONIC MYELOID LEUKAEMIA
     Dosage: 150 MG, BID
     Route: 048

REACTIONS (7)
  - Gout [Unknown]
  - Muscle spasms [Recovering/Resolving]
  - Influenza [Recovered/Resolved]
  - Myalgia [Recovering/Resolving]
  - Monoplegia [Recovering/Resolving]
  - Oedema [Recovered/Resolved]
  - Spinal pain [Recovering/Resolving]
